FAERS Safety Report 5634767-1 (Version None)
Quarter: 2008Q1

REPORT INFORMATION
  Report Type: 
  Country: None (occurrence: None)
  Receive Date: 20080222
  Receipt Date: 20080219
  Transmission Date: 20080703
  Serious: Yes (Hospitalization)
  Sender: FDA-Public Use
  Company Number: GB-MERCK-0802GBR00082

PATIENT
  Sex: Female

DRUGS (2)
  1. CANCIDAS [Suspect]
     Indication: FUNGAL INFECTION
     Route: 042
  2. [THERAPY UNSPECIFIED] [Concomitant]
     Route: 065

REACTIONS (3)
  - OEDEMA [None]
  - RASH [None]
  - SWELLING [None]
